FAERS Safety Report 4965792-1 (Version None)
Quarter: 2006Q2

REPORT INFORMATION
  Report Type: 
  Country: None (occurrence: None)
  Receive Date: 20060406
  Receipt Date: 20060406
  Transmission Date: 20061013
  Serious: Yes (Other)
  Sender: FDA-Public Use
  Company Number: None

PATIENT
  Sex: Male
  Weight: 81.6475 kg

DRUGS (4)
  1. MOTRIN [Suspect]
     Indication: LORDOSIS
     Dosage: CANNOT RECALL
     Dates: start: 19900910
  2. FLEXERIL [Suspect]
  3. CODEINE [Suspect]
  4. TYLENOL W/ CODEINE NO. 4 [Suspect]

REACTIONS (3)
  - DRUG INEFFECTIVE [None]
  - HALLUCINATION [None]
  - SOMNOLENCE [None]
